FAERS Safety Report 5582985-3 (Version None)
Quarter: 2007Q4

REPORT INFORMATION
  Report Type: 
  Country: None (occurrence: None)
  Receive Date: 20071231
  Receipt Date: 20071218
  Transmission Date: 20080405
  Serious: Yes (Other)
  Sender: FDA-Public Use
  Company Number: GXKR2007GB10871

PATIENT
  Age: 40 Year

DRUGS (2)
  1. METFORMIN HCL [Suspect]
     Indication: POLYCYSTIC OVARIES
     Dosage: 500 MG, BID, ORAL
     Route: 048
     Dates: start: 20070501, end: 20070601
  2. CLOMIPHENE (CLOMIFENE) [Suspect]
     Indication: INFERTILITY
     Dosage: 100 MG, QD, ORAL
     Route: 048
     Dates: start: 20070501

REACTIONS (3)
  - ALOPECIA [None]
  - HEADACHE [None]
  - WEIGHT INCREASED [None]
